FAERS Safety Report 22270937 (Version 5)
Quarter: 2023Q4

REPORT INFORMATION
  Report Type: Spontaneous
  Country: DE (occurrence: DE)
  Receive Date: 20230501
  Receipt Date: 20231215
  Transmission Date: 20240110
  Serious: Yes (Hospitalization)
  Sender: FDA-Public Use
  Company Number: DE-TAKEDA-2023TUS041369

PATIENT
  Age: 55 Year
  Sex: Male

DRUGS (4)
  1. ENTYVIO [Suspect]
     Active Substance: VEDOLIZUMAB
     Indication: Colitis ulcerative
     Dosage: UNK
     Route: 065
     Dates: start: 201411
  2. ENTYVIO [Suspect]
     Active Substance: VEDOLIZUMAB
     Dosage: UNK
     Route: 065
     Dates: start: 201412
  3. ENTYVIO [Suspect]
     Active Substance: VEDOLIZUMAB
     Dosage: UNK
     Route: 065
     Dates: start: 201811
  4. ENTYVIO [Suspect]
     Active Substance: VEDOLIZUMAB
     Dosage: UNK
     Route: 065
     Dates: start: 201812

REACTIONS (23)
  - Fear of death [Unknown]
  - Personality change [Unknown]
  - Anxiety disorder [Unknown]
  - Head discomfort [Unknown]
  - Limb discomfort [Unknown]
  - Apathy [Unknown]
  - Productive cough [Unknown]
  - Feeling of despair [Unknown]
  - Throat clearing [Unknown]
  - Illness [Unknown]
  - Insomnia [Unknown]
  - Dysphonia [Unknown]
  - Neurological symptom [Unknown]
  - Pain [Unknown]
  - Sleep disorder [Unknown]
  - Lung disorder [Unknown]
  - Muscle strain [Unknown]
  - Hyperhidrosis [Unknown]
  - Vision blurred [Unknown]
  - Nasopharyngitis [Unknown]
  - Cough [Unknown]
  - Pyrexia [Unknown]
  - Pain in extremity [Unknown]
